FAERS Safety Report 6301378-4 (Version None)
Quarter: 2009Q3

REPORT INFORMATION
  Report Type: 
  Country: None (occurrence: None)
  Receive Date: 20090807
  Receipt Date: 20090731
  Transmission Date: 20100115
  Serious: Yes (Hospitalization, Other)
  Sender: FDA-Public Use
  Company Number: AU-JNJFOC-20090800030

PATIENT
  Age: 48 Year
  Sex: Male

DRUGS (3)
  1. TOPIRAMATE [Suspect]
     Indication: EPILEPSY
     Route: 065
  2. POSACONAZOLE [Interacting]
     Indication: EPILEPSY
     Route: 065
  3. VALPROIC ACID [Concomitant]
     Indication: EPILEPSY
     Route: 065

REACTIONS (5)
  - DECREASED APPETITE [None]
  - DRUG INTERACTION [None]
  - SOMNOLENCE [None]
  - STUPOR [None]
  - WEIGHT DECREASED [None]
